FAERS Safety Report 6863483-3 (Version None)
Quarter: 2010Q3

REPORT INFORMATION
  Report Type: 
  Country: None (occurrence: None)
  Receive Date: 20100721
  Receipt Date: 20100716
  Transmission Date: 20110219
  Serious: Yes (Death, Hospitalization)
  Sender: FDA-Public Use
  Company Number: TH-PFIZER INC-2006134251

PATIENT
  Age: 78 Year
  Sex: Female
  Weight: 62.4 kg

DRUGS (3)
  1. SUNITINIB MALATE [Suspect]
     Indication: METASTATIC RENAL CELL CARCINOMA
     Dosage: 50 MG, 1X/DAY
     Route: 048
     Dates: start: 20060801, end: 20061026
  2. SUNITINIB MALATE [Suspect]
     Dosage: 50 MG, 1X/DAY
     Route: 048
     Dates: start: 20061115
  3. MEGACE [Concomitant]
     Dosage: UNK
     Route: 048
     Dates: start: 20060729

REACTIONS (2)
  - ASCITES [None]
  - DEATH [None]
